FAERS Safety Report 6464834 (Version 21)
Quarter: 2013Q3

REPORT INFORMATION
  Report Type: Spontaneous
  Country: US (occurrence: US)
  Receive Date: 20071113
  Receipt Date: 20130828
  Transmission Date: 20140515
  Serious: Yes (Death, Other)
  Sender: FDA-Public Use
  Company Number: PHEH2007US14501

PATIENT
  Age: 52 Year
  Sex: Male
  Weight: 90.7 kg

DRUGS (21)
  1. ZOMETA [Suspect]
     Indication: METASTASES TO BONE
     Dosage: 4 MG, Q28 DAYS
     Route: 042
     Dates: end: 20060424
  2. OXYCONTIN [Concomitant]
  3. PERCOCET [Concomitant]
  4. INTERFERON [Concomitant]
  5. RADIATION THERAPY [Concomitant]
     Dates: start: 20080103, end: 20080211
  6. ASPIRIN [Concomitant]
  7. AMIODARONE [Concomitant]
  8. FAMOTIDINE [Concomitant]
  9. METOCLOPRAMIDE [Concomitant]
  10. SORAFENIB [Concomitant]
     Dates: start: 200602
  11. LEXAPRO [Concomitant]
     Dosage: 20 MG, QHS
     Route: 048
  12. MEGACE [Concomitant]
     Dosage: 40 MG/ML,
  13. FLOMAX ^BOEHRINGER INGELHEIM^ [Concomitant]
     Dosage: 0.4 MG, QD
     Route: 048
  14. ATENOLOL ^ALIUD PHARMA^ [Concomitant]
     Dosage: 50 MG, QD
     Route: 048
  15. MS CONTIN [Concomitant]
     Dosage: 100 MG, Q12H
  16. HYDROCHLOROTHIAZIDE [Concomitant]
     Dosage: 25 MG, QD
     Route: 048
  17. SERTRALINE [Concomitant]
     Dosage: 50 MG, QHS
     Route: 048
  18. ZOLPIDEM [Concomitant]
     Dosage: 5 MG, QHS
  19. PANTOPRAZOLE [Concomitant]
     Dosage: 40 MG, QD
     Route: 048
  20. NEXAVAR [Concomitant]
     Dosage: 200 MG, BID
  21. GABAPENTIN [Concomitant]
     Dosage: 600 MG, BID
     Route: 048

REACTIONS (85)
  - Cardio-respiratory arrest [Fatal]
  - Intervertebral disc degeneration [Unknown]
  - Lumbar spinal stenosis [Unknown]
  - Osteopenia [Unknown]
  - Bone lesion [Unknown]
  - Palmar-plantar erythrodysaesthesia syndrome [Unknown]
  - Osteonecrosis of jaw [Unknown]
  - Injury [Unknown]
  - Pain [Unknown]
  - Anxiety [Unknown]
  - Anhedonia [Unknown]
  - Gingival ulceration [Unknown]
  - Bone disorder [Unknown]
  - Gingival pain [Unknown]
  - Oral pain [Unknown]
  - Osteomyelitis acute [Unknown]
  - Oral disorder [Unknown]
  - Mouth ulceration [Unknown]
  - Dental caries [Unknown]
  - Tooth fracture [Unknown]
  - Atelectasis [Unknown]
  - Pulmonary fibrosis [Unknown]
  - Lymphadenopathy [Unknown]
  - Exposed bone in jaw [Unknown]
  - Emphysema [Unknown]
  - Spinal osteoarthritis [Unknown]
  - Bone cyst [Unknown]
  - Soft tissue mass [Unknown]
  - Benign neoplasm of spinal cord [Unknown]
  - Thyroid neoplasm [Unknown]
  - Adrenal neoplasm [Unknown]
  - Anaemia [Unknown]
  - Neutropenia [Unknown]
  - Fatigue [Unknown]
  - Weight decreased [Unknown]
  - Diarrhoea [Unknown]
  - Pyrexia [Unknown]
  - Constipation [Unknown]
  - Headache [Unknown]
  - Amnesia [Unknown]
  - Decreased appetite [Unknown]
  - Hypoaesthesia [Unknown]
  - Oedema peripheral [Unknown]
  - Arrhythmia [Unknown]
  - Septic shock [Unknown]
  - Haematuria [Unknown]
  - Osteoarthritis [Unknown]
  - Hyperlipidaemia [Unknown]
  - Atrial fibrillation [Unknown]
  - Rectal haemorrhage [Unknown]
  - Bursitis [Recovering/Resolving]
  - Tricuspid valve incompetence [Unknown]
  - Gastritis [Unknown]
  - Metastases to bone [Unknown]
  - Malignant neoplasm progression [Unknown]
  - Metastases to lung [Unknown]
  - Metastases to liver [Unknown]
  - Metastases to gastrointestinal tract [Unknown]
  - Metabolic acidosis [Unknown]
  - Respiratory failure [Unknown]
  - Tachyarrhythmia [Unknown]
  - Mitral valve incompetence [Unknown]
  - Dyspnoea [Unknown]
  - Lung infiltration [Unknown]
  - Chronic obstructive pulmonary disease [Unknown]
  - Abdominal mass [Unknown]
  - Pneumonia [Unknown]
  - Arthralgia [Unknown]
  - Metastases to spine [Unknown]
  - Intervertebral disc protrusion [Unknown]
  - Large intestine polyp [Unknown]
  - Syncope [Unknown]
  - Dizziness [Unknown]
  - Prostate cancer metastatic [Unknown]
  - Pathological fracture [Unknown]
  - Lumbar radiculopathy [Unknown]
  - Gait disturbance [Unknown]
  - Dysphagia [Unknown]
  - Dermatitis [Unknown]
  - Tremor [Unknown]
  - Candida infection [Unknown]
  - Leukopenia [Unknown]
  - Anaemia macrocytic [Unknown]
  - Hyperglycaemia [Unknown]
  - Hypothyroidism [Unknown]
